FAERS Safety Report 16971534 (Version 2)
Quarter: 2019Q4

REPORT INFORMATION
  Report Type: Report from Study
  Country: US (occurrence: US)
  Receive Date: 20191029
  Receipt Date: 20191030
  Transmission Date: 20200122
  Serious: Yes (Hospitalization, Other)
  Sender: FDA-Public Use
  Company Number: US-GILEAD-2019-0435119

PATIENT
  Age: 47 Year
  Sex: Female

DRUGS (2)
  1. AZTREONAM LYSINE [Suspect]
     Active Substance: AZTREONAM LYSINE
     Indication: CYSTIC FIBROSIS
     Dosage: 75 MG, TID
     Route: 055
     Dates: start: 20190823
  2. LEVALBUTEROL [LEVOSALBUTAMOL] [Concomitant]
     Active Substance: LEVALBUTEROL

REACTIONS (4)
  - Diarrhoea [Recovering/Resolving]
  - Product dose omission [Unknown]
  - Constipation [Recovering/Resolving]
  - Cystic fibrosis [Unknown]

NARRATIVE: CASE EVENT DATE: 20191022
